FAERS Safety Report 14081593 (Version 1)
Quarter: 2017Q4

REPORT INFORMATION
  Report Type: Spontaneous
  Country: US (occurrence: US)
  Receive Date: 20171012
  Receipt Date: 20171012
  Transmission Date: 20180321
  Serious: No
  Sender: FDA-Public Use
  Company Number: US-MYLANLABS-2017M1041785

PATIENT
  Age: 2 Year
  Sex: Female

DRUGS (1)
  1. VUSION [Suspect]
     Active Substance: MICONAZOLE NITRATE\PETROLATUM\ZINC OXIDE
     Indication: PRODUCT USED FOR UNKNOWN INDICATION
     Dosage: UNK

REACTIONS (1)
  - Accidental exposure to product by child [Unknown]
